FAERS Safety Report 21357982 (Version 9)
Quarter: 2023Q1

REPORT INFORMATION
  Report Type: Report from Study
  Country: US (occurrence: US)
  Receive Date: 20220921
  Receipt Date: 20230302
  Transmission Date: 20230418
  Serious: No
  Sender: FDA-Public Use
  Company Number: US-NOVARTISTESTPH-NVSC2022US213071

PATIENT
  Sex: Male

DRUGS (1)
  1. COSENTYX [Suspect]
     Active Substance: SECUKINUMAB
     Indication: Psoriatic arthropathy
     Dosage: UNK
     Route: 065
     Dates: start: 20220823

REACTIONS (6)
  - Arthralgia [Unknown]
  - Pain [Unknown]
  - Nerve injury [Unknown]
  - Sciatica [Unknown]
  - Injection site haemorrhage [Unknown]
  - Drug ineffective [Unknown]
